FAERS Safety Report 17043363 (Version 3)
Quarter: 2019Q4

REPORT INFORMATION
  Report Type: Spontaneous
  Country: US (occurrence: US)
  Receive Date: 20191118
  Receipt Date: 20191202
  Transmission Date: 20200122
  Serious: No
  Sender: FDA-Public Use
  Company Number: US-PFIZER INC-2019458378

PATIENT
  Age: 56 Year
  Sex: Male
  Weight: 170.1 kg

DRUGS (2)
  1. SKELAXIN [Suspect]
     Active Substance: METAXALONE
     Indication: SKELETAL INJURY
     Dosage: 800 MG, 3X/DAY
     Route: 048
  2. CELEBREX [Concomitant]
     Active Substance: CELECOXIB
     Indication: SKELETAL INJURY
     Dosage: 200 MG, 2X/DAY

REACTIONS (3)
  - Intentional product misuse [Unknown]
  - Memory impairment [Unknown]
  - Mobility decreased [Unknown]

NARRATIVE: CASE EVENT DATE: 20191022
